FAERS Safety Report 21069490 (Version 1)
Quarter: 2022Q3

REPORT INFORMATION
  Report Type: Spontaneous
  Country: US (occurrence: US)
  Receive Date: 20220712
  Receipt Date: 20220712
  Transmission Date: 20221027
  Serious: No
  Sender: FDA-Public Use
  Company Number: US-ASTPRD-AER-2022-006569

PATIENT
  Age: 82 Year
  Sex: Male

DRUGS (1)
  1. MYRBETRIQ [Suspect]
     Active Substance: MIRABEGRON
     Indication: Bladder disorder
     Dosage: 25 MG, ONCE DAILY (EXTENDED RELEASE TABLET)
     Route: 048
     Dates: start: 2022

REACTIONS (1)
  - Off label use [Unknown]
